FAERS Safety Report 9129317 (Version 1)
Quarter: 2013Q1

REPORT INFORMATION
  Report Type: Spontaneous
  Country: US (occurrence: US)
  Receive Date: 20130228
  Receipt Date: 20130228
  Transmission Date: 20140127
  Serious: No
  Sender: FDA-Public Use
  Company Number: US-ABBOTT-13P-163-1033390-00

PATIENT
  Age: 32 Year
  Sex: Male

DRUGS (1)
  1. ANDROGEL [Suspect]
     Indication: BLOOD TESTOSTERONE DECREASED

REACTIONS (2)
  - Ill-defined disorder [Not Recovered/Not Resolved]
  - Agitation [Not Recovered/Not Resolved]
